FAERS Safety Report 5606768-0 (Version None)
Quarter: 2008Q1

REPORT INFORMATION
  Report Type: 
  Country: None (occurrence: None)
  Receive Date: 20080129
  Receipt Date: 20080124
  Transmission Date: 20080703
  Serious: Yes (Death, Other)
  Sender: FDA-Public Use
  Company Number: GB-ABBOTT-07P-167-0419258-00

PATIENT
  Sex: Male

DRUGS (3)
  1. KLARICID IV [Suspect]
     Indication: PNEUMONIA
     Dosage: GRAVITY FED
     Route: 042
  2. KLARICID IV [Suspect]
     Indication: OESOPHAGEAL OBSTRUCTION
  3. PARACETAMOL [Concomitant]
     Indication: PYREXIA
     Route: 042

REACTIONS (7)
  - CATHETER RELATED COMPLICATION [None]
  - ERYTHEMA [None]
  - EXTRAVASATION [None]
  - LOCAL SWELLING [None]
  - OESOPHAGEAL CARCINOMA [None]
  - PAIN [None]
  - SKIN IRRITATION [None]
